FAERS Safety Report 13132785 (Version 5)
Quarter: 2018Q1

REPORT INFORMATION
  Report Type: Report from Study
  Country: US (occurrence: US)
  Receive Date: 20170120
  Receipt Date: 20180309
  Transmission Date: 20180508
  Serious: Yes (Other)
  Sender: FDA-Public Use
  Company Number: PHEH2017US001921

PATIENT
  Sex: Female
  Weight: 45.35 kg

DRUGS (1)
  1. GILENYA [Suspect]
     Active Substance: FINGOLIMOD HYDROCHLORIDE
     Indication: MULTIPLE SCLEROSIS
     Dosage: 0.5 MG, QD
     Route: 048
     Dates: start: 20140514

REACTIONS (7)
  - Malaise [Unknown]
  - Fibromyalgia [Unknown]
  - Coeliac disease [Unknown]
  - Immunodeficiency [Unknown]
  - Bronchitis [Unknown]
  - Feeling abnormal [Unknown]
  - Weight decreased [Unknown]
